FAERS Safety Report 8966993 (Version 1)
Quarter: 2012Q4

REPORT INFORMATION
  Report Type: 
  Country: BR (occurrence: BR)
  Receive Date: 20121214
  Receipt Date: 20121214
  Transmission Date: 20130627
  Serious: Yes (Hospitalization, Other)
  Sender: FDA-Public Use
  Company Number: BR-PFIZER INC-2012311330

PATIENT
  Age: 63 Year
  Sex: Female

DRUGS (1)
  1. PENTOSAN POLYSULFATE [Suspect]
     Indication: WOUND
     Dosage: UNK
     Dates: start: 20121206

REACTIONS (2)
  - Wound complication [Not Recovered/Not Resolved]
  - Sluggishness [Not Recovered/Not Resolved]
